FAERS Safety Report 6267071-1 (Version None)
Quarter: 2009Q3

REPORT INFORMATION
  Report Type: 
  Country: None (occurrence: None)
  Receive Date: 20090714
  Receipt Date: 20090703
  Transmission Date: 20100115
  Serious: Yes (Life-Threatening, Other)
  Sender: FDA-Public Use
  Company Number: DK-JNJFOC-20090307477

PATIENT
  Sex: Female
  Weight: 87 kg

DRUGS (16)
  1. REMICADE [Suspect]
     Route: 042
  2. REMICADE [Suspect]
     Route: 042
  3. REMICADE [Suspect]
     Indication: RHEUMATOID ARTHRITIS
     Dosage: WEEK 0, 2, 6+8
     Route: 042
  4. PREDNISOLONE [Concomitant]
     Dosage: MAXIMUM 4 TIMES DAILY
  5. PREDNISOLONE [Concomitant]
  6. POTASSIUM CHLORIDE [Concomitant]
     Route: 048
  7. PREDNISOLONE [Concomitant]
  8. PREDNISOLONE [Concomitant]
  9. METHOTREXATE [Concomitant]
     Indication: RHEUMATOID ARTHRITIS
     Route: 048
  10. NORVASC [Concomitant]
     Indication: HYPERTENSION
  11. ELTROXIN [Concomitant]
     Indication: HYPOTHYROIDISM
  12. FUROSEMIDE [Concomitant]
     Route: 048
  13. CODEINE [Concomitant]
     Dosage: MAXIMUM 3 TIMES DAILY
     Route: 048
  14. FOLIC ACID [Concomitant]
  15. ACETAMINOPHEN [Concomitant]
     Dosage: MAXIMUM 3 TIMES DAILY
  16. ZOCOR [Concomitant]

REACTIONS (2)
  - BREAST CANCER [None]
  - RASH PRURITIC [None]
